FAERS Safety Report 6773227-1 (Version None)
Quarter: 2010Q2

REPORT INFORMATION
  Report Type: 
  Country: None (occurrence: None)
  Receive Date: 20100616
  Receipt Date: 20100601
  Transmission Date: 20101027
  Serious: No
  Sender: FDA-Public Use
  Company Number: PR-ABBOTT-10P-131-0637477-00

PATIENT
  Sex: Female
  Weight: 98.972 kg

DRUGS (1)
  1. TRILIPIX [Suspect]
     Indication: DRUG USE FOR UNKNOWN INDICATION
     Dosage: RECEIVED TWO INJECTIONS
     Route: 048

REACTIONS (5)
  - ABDOMINAL PAIN UPPER [None]
  - DERMATITIS ALLERGIC [None]
  - DIARRHOEA [None]
  - HEADACHE [None]
  - RASH [None]
